FAERS Safety Report 9934658 (Version 2)
Quarter: 2014Q2

REPORT INFORMATION
  Report Type: Report from Study
  Country: CA (occurrence: CA)
  Receive Date: 20140228
  Receipt Date: 20140424
  Transmission Date: 20141212
  Serious: No
  Sender: FDA-Public Use
  Company Number: CA-009507513-1402CAN012723

PATIENT
  Age: 60 Year
  Sex: Male
  Weight: 61 kg

DRUGS (14)
  1. BOCEPREVIR [Suspect]
     Indication: HEPATITIS C
     Dosage: UNK
     Route: 048
     Dates: start: 20140108, end: 20140121
  2. PEGINTERFERON ALFA-2A [Suspect]
     Indication: HEPATITIS C
     Dosage: 180 MICROGRAM, QW
     Route: 058
     Dates: start: 20131127, end: 20140102
  3. PEGINTERFERON ALFA-2A [Suspect]
     Dosage: 135 MICROGRAM, QW
     Route: 058
     Dates: start: 20140102, end: 20140122
  4. RIBAVIRIN [Suspect]
     Indication: HEPATITIS C
     Dosage: 1200 MG, QD
     Route: 048
     Dates: start: 20131127, end: 20140108
  5. RIBAVIRIN [Suspect]
     Dosage: 1000 MG, QD
     Route: 048
     Dates: start: 20140108, end: 20140121
  6. EFFEXOR [Concomitant]
     Dosage: 225 MG, QD
     Route: 048
     Dates: start: 20110916
  7. ENSURE [Concomitant]
     Indication: ROUTINE HEALTH MAINTENANCE
     Dosage: 1 DF, TID
     Route: 048
     Dates: start: 20130604
  8. ATROVENT [Concomitant]
     Dosage: 18 MICROGRAM, TID
     Route: 055
     Dates: start: 20090512
  9. LOSEC (OMEPRAZOLE) [Concomitant]
     Dosage: 20 MG, QD
     Route: 048
     Dates: start: 20091202
  10. VENTOLIN (ALBUTEROL SULFATE) [Concomitant]
     Dosage: 100 MICROGRAM, Q4H PRN
     Route: 055
     Dates: start: 20090512
  11. ADVAIR [Concomitant]
     Dosage: 250 MICROGRAM, BID
     Route: 055
     Dates: start: 20100304
  12. HYDROXYZINE [Concomitant]
     Indication: URTICARIA
     Dosage: 10-20 MG, QHS PRN
     Route: 048
     Dates: start: 20131224
  13. HYDROCORTISONE ACETATE [Concomitant]
     Indication: RASH
     Dosage: 1 %, BID
     Route: 061
     Dates: start: 20140108
  14. ZOPICLONE [Concomitant]
     Indication: ADVERSE EVENT
     Dosage: 5 MG, QHS PRN
     Route: 048

REACTIONS (1)
  - Thrombocytopenia [Unknown]
